FAERS Safety Report 9585478 (Version 2)
Quarter: 2014Q2

REPORT INFORMATION
  Report Type: Spontaneous
  Country: GB (occurrence: GB)
  Receive Date: 20131003
  Receipt Date: 20140509
  Transmission Date: 20141212
  Serious: Yes (Hospitalization)
  Sender: FDA-Public Use
  Company Number: PHHY2013GB107286

PATIENT
  Age: 70 Year
  Sex: Male
  Weight: 73 kg

DRUGS (3)
  1. INDAPAMIDE [Suspect]
     Indication: CEREBROVASCULAR ACCIDENT
     Dosage: 2.5 MG, UNK
     Route: 048
     Dates: start: 20130226, end: 20130303
  2. PERINDOPRIL [Concomitant]
  3. PENTASA [Concomitant]

REACTIONS (2)
  - Convulsion [Recovered/Resolved with Sequelae]
  - Hyponatraemia [Recovered/Resolved]
